FAERS Safety Report 7200839-3 (Version None)
Quarter: 2010Q4

REPORT INFORMATION
  Report Type: 
  Country: None (occurrence: None)
  Receive Date: 20101228
  Receipt Date: 20101222
  Transmission Date: 20110411
  Serious: Yes (Other)
  Sender: FDA-Public Use
  Company Number: US-PFIZER INC-2010177906

PATIENT

DRUGS (6)
  1. GEODON [Suspect]
     Dosage: 40 MG, 1X/DAY
  2. LAMICTAL [Concomitant]
     Dosage: 300 MG, UNK
  3. PALIPERIDONE [Concomitant]
     Dosage: 3 MG, UNK
  4. ATARAX [Concomitant]
     Dosage: UNK
  5. VITAMIN D [Concomitant]
     Dosage: UNK
  6. OMEGA-3 TRIGLYCERIDES [Concomitant]
     Dosage: UNK

REACTIONS (10)
  - ABDOMINAL PAIN UPPER [None]
  - AFFECTIVE DISORDER [None]
  - ANXIETY [None]
  - AUTISM [None]
  - DIZZINESS [None]
  - DYSKINESIA [None]
  - EPILEPSY [None]
  - MUSCULAR WEAKNESS [None]
  - POLLAKIURIA [None]
  - PYREXIA [None]
